FAERS Safety Report 10910497 (Version 1)
Quarter: 2015Q1

REPORT INFORMATION
  Report Type: Spontaneous
  Country: US (occurrence: US)
  Receive Date: 20150312
  Receipt Date: 20150312
  Transmission Date: 20150721
  Serious: No
  Sender: FDA-Public Use
  Company Number: US-SA-2014SA128396

PATIENT
  Age: 36 Year
  Sex: Male

DRUGS (1)
  1. NASACORT ALLERGY 24HR [Suspect]
     Active Substance: TRIAMCINOLONE ACETONIDE
     Indication: MULTIPLE ALLERGIES
     Dosage: FORM: SPRAY?DOSE:2 SPRAYS
     Route: 065
     Dates: start: 20140914, end: 20140915

REACTIONS (3)
  - Heart rate increased [Unknown]
  - Anxiety [Unknown]
  - Dry mouth [Unknown]

NARRATIVE: CASE EVENT DATE: 20140915
